FAERS Safety Report 12162361 (Version 3)
Quarter: 2016Q2

REPORT INFORMATION
  Report Type: Report from Study
  Country: CO (occurrence: CO)
  Receive Date: 20160309
  Receipt Date: 20160607
  Transmission Date: 20160815
  Serious: Yes (Death, Hospitalization, Other)
  Sender: FDA-Public Use
  Company Number: PHHY2016CO031098

PATIENT
  Age: 38 Year
  Sex: Female
  Weight: 55 kg

DRUGS (3)
  1. TRAMADOL. [Concomitant]
     Active Substance: TRAMADOL
     Indication: PRODUCT USED FOR UNKNOWN INDICATION
     Route: 065
  2. AFINITOR [Suspect]
     Active Substance: EVEROLIMUS
     Indication: NEUROENDOCRINE TUMOUR
     Dosage: 5 MG, BID
     Route: 048
     Dates: start: 20151030, end: 20160412
  3. SANDOSTATIN LAR DEPOT [Suspect]
     Active Substance: OCTREOTIDE ACETATE
     Indication: NEUROENDOCRINE TUMOUR
     Dosage: 20 MG, QMO, ONCE A MONTH
     Route: 030
     Dates: start: 20151026

REACTIONS (9)
  - Death [Fatal]
  - Gastrointestinal inflammation [Unknown]
  - Gastrointestinal oedema [Unknown]
  - Pain [Unknown]
  - Rectal injury [Unknown]
  - Hepatitis [Unknown]
  - Feeding disorder [Unknown]
  - Decreased immune responsiveness [Unknown]
  - Transaminases increased [Unknown]

NARRATIVE: CASE EVENT DATE: 20160412
